FAERS Safety Report 9921957 (Version 1)
Quarter: 2014Q1

REPORT INFORMATION
  Report Type: Spontaneous
  Country: US (occurrence: None)
  Receive Date: 20140221
  Receipt Date: 20140221
  Transmission Date: 20141002
  Serious: Yes (Life-Threatening, Hospitalization)
  Sender: FDA-Public Use
  Company Number: None

PATIENT
  Age: 64 Year
  Sex: Male
  Weight: 95.26 kg

DRUGS (2)
  1. PRADAXA [Suspect]
     Indication: THROMBOSIS PROPHYLAXIS
     Dosage: 2 150 MG TABLETS PER DAY  TWICE DAILY  TAKEN BY MOUTH
     Route: 048
     Dates: start: 20130315, end: 20131108
  2. PRADAXA [Suspect]
     Indication: THROMBOSIS PROPHYLAXIS
     Dosage: 2 150 MG TABLETS PER DAY  TWICE DAILY  TAKEN BY MOUTH
     Route: 048
     Dates: start: 20130315, end: 20131108

REACTIONS (2)
  - Deep vein thrombosis [None]
  - Pulmonary embolism [None]
